FAERS Safety Report 8093704-3 (Version None)
Quarter: 2012Q1

REPORT INFORMATION
  Report Type: 
  Country: None (occurrence: None)
  Receive Date: 20120129
  Receipt Date: 20111026
  Transmission Date: 20120608
  Serious: No
  Sender: FDA-Public Use
  Company Number: US-ABBOTT-11P-163-0868713-00

PATIENT
  Age: 21 Year
  Sex: Female

DRUGS (4)
  1. BIRTH CONTROL [Concomitant]
     Indication: PRODUCT USED FOR UNKNOWN INDICATION
     Dosage: PILL
     Route: 048
  2. HUMIRA [Suspect]
     Indication: RHEUMATOID ARTHRITIS
     Dates: start: 20111001
  3. XYBETA [Concomitant]
     Indication: SINUS TACHYCARDIA
     Route: 048
  4. SPIRIVA [Concomitant]
     Indication: DYSPNOEA
     Route: 048

REACTIONS (4)
  - ANXIETY [None]
  - SINUSITIS [None]
  - EAR INFECTION [None]
  - IRRITABLE BOWEL SYNDROME [None]
